FAERS Safety Report 9137388 (Version 2)
Quarter: 2013Q3

REPORT INFORMATION
  Report Type: Spontaneous
  Country: US (occurrence: US)
  Receive Date: 20130304
  Receipt Date: 20130710
  Transmission Date: 20140515
  Serious: No
  Sender: FDA-Public Use
  Company Number: US-PFIZER INC-2013070793

PATIENT
  Age: 67 Year
  Sex: Female
  Weight: 63.49 kg

DRUGS (1)
  1. BENEFIX [Suspect]
     Indication: FACTOR IX DEFICIENCY
     Dosage: 50 IU/KG, WEEKLY (2 TIIMES PER WEEK)

REACTIONS (2)
  - Off label use [Unknown]
  - Joint injury [Unknown]
